FAERS Safety Report 6383494-4 (Version None)
Quarter: 2009Q4

REPORT INFORMATION
  Report Type: 
  Country: None (occurrence: None)
  Receive Date: 20091001
  Receipt Date: 20090925
  Transmission Date: 20100525
  Serious: Yes (Death)
  Sender: FDA-Public Use
  Company Number: IT-ELI_LILLY_AND_COMPANY-IT200909005827

PATIENT
  Sex: Male

DRUGS (4)
  1. BYETTA [Suspect]
     Indication: TYPE 2 DIABETES MELLITUS
     Dosage: 10 UG, 2/D
     Route: 058
     Dates: start: 20080617, end: 20090601
  2. GLIBENCLAMIDE [Concomitant]
     Dosage: 5 MG, UNKNOWN
     Route: 048
     Dates: start: 20000601, end: 20090601
  3. METFORMIN HCL [Concomitant]
     Dosage: 1800 MG, UNKNOWN
     Route: 048
     Dates: start: 20000601, end: 20090601
  4. ROSUVASTATIN CALCIUM [Concomitant]
     Dosage: 10 MG, UNKNOWN
     Route: 048
     Dates: start: 20060601, end: 20090601

REACTIONS (1)
  - PANCREATIC NEUROENDOCRINE TUMOUR [None]
